FAERS Safety Report 5961856-4 (Version None)
Quarter: 2008Q4

REPORT INFORMATION
  Report Type: 
  Country: None (occurrence: None)
  Receive Date: 20081121
  Receipt Date: 20080414
  Transmission Date: 20090506
  Serious: No
  Sender: FDA-Public Use
  Company Number: US-BRISTOL-MYERS SQUIBB COMPANY-14152847

PATIENT
  Sex: Male

DRUGS (2)
  1. AVALIDE [Suspect]
  2. PLAVIX [Suspect]

REACTIONS (3)
  - ARTHRALGIA [None]
  - FATIGUE [None]
  - RASH [None]
